FAERS Safety Report 6998703-8 (Version None)
Quarter: 2010Q3

REPORT INFORMATION
  Report Type: 
  Country: None (occurrence: None)
  Receive Date: 20100920
  Receipt Date: 20100203
  Transmission Date: 20110219
  Serious: No
  Sender: FDA-Public Use
  Company Number: US-ASTRAZENECA-2009SE32737

PATIENT
  Age: 41 Year
  Sex: Female
  Weight: 83.9 kg

DRUGS (5)
  1. SEROQUEL [Suspect]
     Indication: DEPRESSION
     Route: 048
     Dates: start: 20090101, end: 20090901
  2. SEROQUEL [Suspect]
     Indication: BIPOLAR DISORDER
     Route: 048
     Dates: start: 20090101, end: 20090901
  3. ABILIFY [Concomitant]
     Dates: start: 20091001
  4. LAMICTAL [Concomitant]
     Dates: start: 20090101
  5. PROZAC [Concomitant]
     Dates: start: 20050101

REACTIONS (4)
  - ANKLE FRACTURE [None]
  - INTERVERTEBRAL DISC PROTRUSION [None]
  - SPINAL COLUMN STENOSIS [None]
  - TYPE 2 DIABETES MELLITUS [None]
